FAERS Safety Report 16860822 (Version 1)
Quarter: 2019Q3

REPORT INFORMATION
  Report Type: Spontaneous
  Country: GB (occurrence: GB)
  Receive Date: 20190927
  Receipt Date: 20190927
  Transmission Date: 20191005
  Serious: Yes (Life-Threatening, Hospitalization)
  Sender: FDA-Public Use
  Company Number: GB-TEVA-2019-GB-1113501

PATIENT
  Age: 76 Year
  Sex: Male
  Weight: 67 kg

DRUGS (3)
  1. HEPARINS, LOW-MOLECULAR-MASS [Concomitant]
     Active Substance: UNSPECIFIED INGREDIENT
  2. STEROID [Concomitant]
     Active Substance: UNSPECIFIED INGREDIENT
     Indication: FOCAL SEGMENTAL GLOMERULOSCLEROSIS
  3. CICLOSPORIN [Suspect]
     Active Substance: CYCLOSPORINE
     Indication: FOCAL SEGMENTAL GLOMERULOSCLEROSIS
     Route: 048
     Dates: start: 20190808, end: 20190825

REACTIONS (6)
  - Conjunctival haemorrhage [Unknown]
  - Epistaxis [Unknown]
  - Microangiopathic haemolytic anaemia [Unknown]
  - Contusion [Unknown]
  - Haematuria [Unknown]
  - Thrombotic thrombocytopenic purpura [Not Recovered/Not Resolved]

NARRATIVE: CASE EVENT DATE: 20190824
